FAERS Safety Report 9637327 (Version 1)
Quarter: 2013Q4

REPORT INFORMATION
  Report Type: Spontaneous
  Country: US (occurrence: US)
  Receive Date: 20131022
  Receipt Date: 20131022
  Transmission Date: 20140711
  Serious: No
  Sender: FDA-Public Use
  Company Number: US-BAYER-2013-127775

PATIENT
  Sex: 0

DRUGS (2)
  1. ALEVE CAPLET [Suspect]
     Indication: PAIN
     Dosage: UNK UNK, UNK
  2. IBUPROFEN [Concomitant]

REACTIONS (1)
  - Drug ineffective [None]
